FAERS Safety Report 13672317 (Version 2)
Quarter: 2019Q2

REPORT INFORMATION
  Report Type: Report from Study
  Country: US (occurrence: MX)
  Receive Date: 20170620
  Receipt Date: 20190610
  Transmission Date: 20190711
  Serious: Yes (Life-Threatening, Other)
  Sender: FDA-Public Use
  Company Number: US-SUNOVION-2017SUN002556

PATIENT
  Sex: Male
  Weight: 71 kg

DRUGS (12)
  1. FENITOINA [Concomitant]
     Active Substance: PHENYTOIN
     Indication: PRODUCT USED FOR UNKNOWN INDICATION
     Route: 065
  2. SPIRIVA [Concomitant]
     Active Substance: TIOTROPIUM BROMIDE MONOHYDRATE
     Indication: PRODUCT USED FOR UNKNOWN INDICATION
     Route: 065
  3. FLUTICASONE. [Concomitant]
     Active Substance: FLUTICASONE
     Indication: PRODUCT USED FOR UNKNOWN INDICATION
     Route: 065
  4. COMBIVENT [Concomitant]
     Active Substance: ALBUTEROL SULFATE\IPRATROPIUM BROMIDE
     Indication: PRODUCT USED FOR UNKNOWN INDICATION
     Route: 065
  5. PHENYTOIN. [Concomitant]
     Active Substance: PHENYTOIN
     Indication: PRODUCT USED FOR UNKNOWN INDICATION
     Route: 065
  6. PERSANTINE [Concomitant]
     Active Substance: DIPYRIDAMOLE
     Indication: PRODUCT USED FOR UNKNOWN INDICATION
     Route: 065
  7. CENTRUM [Concomitant]
     Active Substance: VITAMINS
     Indication: PRODUCT USED FOR UNKNOWN INDICATION
     Route: 065
  8. MONTELUKAST [Concomitant]
     Active Substance: MONTELUKAST SODIUM
     Indication: LUNG DISORDER
     Dosage: 1 DF, QD
     Route: 048
  9. INDACATEROL [Suspect]
     Active Substance: INDACATEROL
     Indication: CHRONIC OBSTRUCTIVE PULMONARY DISEASE
     Dosage: 150 ?G, QD (IN THE AFTERNOON, 4 YEARS AGO APPROXIMATELY)
     Route: 065
     Dates: start: 2013
  10. INDACATEROL [Suspect]
     Active Substance: INDACATEROL
     Dosage: 150 ?G, QD (8 YEARS AGO)
     Route: 055
  11. VERAPAMIL [Concomitant]
     Active Substance: VERAPAMIL HYDROCHLORIDE
     Indication: PRODUCT USED FOR UNKNOWN INDICATION
     Route: 065
  12. CLONAZEPAM. [Concomitant]
     Active Substance: CLONAZEPAM
     Indication: PRODUCT USED FOR UNKNOWN INDICATION
     Route: 065

REACTIONS (20)
  - Sputum retention [Unknown]
  - Nasal congestion [Unknown]
  - Viral upper respiratory tract infection [Unknown]
  - Wrong technique in product usage process [Unknown]
  - Gait disturbance [Unknown]
  - Productive cough [Unknown]
  - Expired product administered [Unknown]
  - Depression [Unknown]
  - Dyspnoea [Unknown]
  - Fall [Unknown]
  - Injection site haemorrhage [Unknown]
  - Cerebral ischaemia [Unknown]
  - Malaise [Unknown]
  - Chronic obstructive pulmonary disease [Unknown]
  - Embolism [Unknown]
  - Agitation [Unknown]
  - Musculoskeletal discomfort [Unknown]
  - Erythema [Unknown]
  - Bronchial obstruction [Unknown]
  - Fatigue [Unknown]
